FAERS Safety Report 21783563 (Version 1)
Quarter: 2022Q4

REPORT INFORMATION
  Report Type: Spontaneous
  Country: IE (occurrence: IE)
  Receive Date: 20221227
  Receipt Date: 20221227
  Transmission Date: 20230113
  Serious: Yes (Hospitalization, Other)
  Sender: FDA-Public Use
  Company Number: IE-009507513-2212IRL008511

PATIENT
  Sex: Male

DRUGS (1)
  1. KEYTRUDA [Suspect]
     Active Substance: PEMBROLIZUMAB
     Dosage: UNK

REACTIONS (4)
  - Gastrointestinal obstruction [Unknown]
  - Gastrointestinal stenosis [Unknown]
  - Abdominal pain [Unknown]
  - Surgery [Unknown]

NARRATIVE: CASE EVENT DATE: 20221213
